FAERS Safety Report 19508687 (Version 3)
Quarter: 2021Q3

REPORT INFORMATION
  Report Type: Spontaneous
  Country: BR (occurrence: BR)
  Receive Date: 20210708
  Receipt Date: 20210721
  Transmission Date: 20211014
  Serious: Yes (Other)
  Sender: FDA-Public Use
  Company Number: BR-PFIZER INC-2021775044

PATIENT
  Sex: Male

DRUGS (1)
  1. ZITROMAX [Suspect]
     Active Substance: AZITHROMYCIN
     Indication: COVID-19
     Dosage: 500 MG

REACTIONS (5)
  - Delusion [Recovered/Resolved]
  - Pneumonia [Unknown]
  - Off label use [Unknown]
  - Hallucination [Recovered/Resolved]
  - Gastrointestinal disorder [Recovered/Resolved]
